FAERS Safety Report 17652155 (Version 5)
Quarter: 2022Q3

REPORT INFORMATION
  Report Type: Spontaneous
  Country: CA (occurrence: CA)
  Receive Date: 20200409
  Receipt Date: 20220720
  Transmission Date: 20221027
  Serious: Yes (Other)
  Sender: FDA-Public Use
  Company Number: CA-SAMSUNG BIOEPIS-SB-2020-11466

PATIENT
  Age: 38 Year
  Sex: Female
  Weight: 80 kg

DRUGS (23)
  1. INFLIXIMAB [Suspect]
     Active Substance: INFLIXIMAB
     Indication: Rheumatoid arthritis
     Route: 042
  2. AMOXICILLIN TRIHYDRATE/ CLARITHROMYCIN/ ESOMEPRAZOLE MAGNESIUM TRIHYDR [Concomitant]
     Indication: Product used for unknown indication
     Route: 048
  3. ACETAMINOPHEN [Concomitant]
     Active Substance: ACETAMINOPHEN
     Indication: Premedication
     Route: 065
  4. BISOPROLOL [Concomitant]
     Active Substance: BISOPROLOL
     Indication: Product used for unknown indication
     Route: 048
  5. CITALOPRAM [Concomitant]
     Active Substance: CITALOPRAM HYDROBROMIDE
     Indication: Product used for unknown indication
     Route: 048
  6. CYMBALTA [Concomitant]
     Active Substance: DULOXETINE HYDROCHLORIDE
     Indication: Product used for unknown indication
     Route: 048
  7. DIPHENHYDRAMINE [Concomitant]
     Active Substance: DIPHENHYDRAMINE
     Indication: Premedication
     Route: 065
  8. ERGOCALCIFEROL [Concomitant]
     Active Substance: ERGOCALCIFEROL
     Indication: Product used for unknown indication
     Route: 048
  9. FOLIC ACID [Concomitant]
     Active Substance: FOLIC ACID
     Indication: Product used for unknown indication
     Route: 048
  10. GABAPENTIN [Concomitant]
     Active Substance: GABAPENTIN
     Indication: Product used for unknown indication
     Route: 048
  11. ETHINYL ESTRADIOL\NORETHINDRONE ACETATE [Concomitant]
     Active Substance: ETHINYL ESTRADIOL\NORETHINDRONE ACETATE
     Indication: Contraception
     Dosage: UNKNOWN
     Route: 048
  12. METHOTREXATE [Concomitant]
     Active Substance: METHOTREXATE
     Indication: Product used for unknown indication
     Route: 058
  13. METHOTREXATE [Concomitant]
     Active Substance: METHOTREXATE
     Route: 065
  14. METHOTREXATE [Concomitant]
     Active Substance: METHOTREXATE
     Route: 048
  15. METHOTREXATE [Concomitant]
     Active Substance: METHOTREXATE
     Route: 058
  16. RABEPRAZOLE SODIUM [Concomitant]
     Active Substance: RABEPRAZOLE SODIUM
     Indication: Product used for unknown indication
     Dosage: TABLET (ENTERIC COATED)
     Route: 048
  17. ZOPICLONE [Concomitant]
     Active Substance: ZOPICLONE
     Indication: Product used for unknown indication
     Route: 048
  18. ACETAMINOPHEN/ CODEINE PHOSPHATE [Concomitant]
     Indication: Product used for unknown indication
     Route: 065
  19. ATORVASTATIN CALCIUM [Concomitant]
     Active Substance: ATORVASTATIN CALCIUM
     Indication: Product used for unknown indication
     Route: 048
  20. CANDESARTAN CILEXETIL [Concomitant]
     Active Substance: CANDESARTAN CILEXETIL
     Indication: Product used for unknown indication
     Route: 065
  21. DULOXETINE [Concomitant]
     Active Substance: DULOXETINE
     Indication: Product used for unknown indication
     Route: 048
  22. PREDNISONE [Concomitant]
     Active Substance: PREDNISONE
     Indication: Product used for unknown indication
     Route: 048
  23. PREGABALIN [Concomitant]
     Active Substance: PREGABALIN
     Indication: Product used for unknown indication
     Route: 048

REACTIONS (20)
  - Burning sensation [Not Recovered/Not Resolved]
  - Chills [Not Recovered/Not Resolved]
  - Cholelithiasis [Not Recovered/Not Resolved]
  - Condition aggravated [Not Recovered/Not Resolved]
  - Dizziness [Not Recovered/Not Resolved]
  - Fatigue [Not Recovered/Not Resolved]
  - Fibromyalgia [Not Recovered/Not Resolved]
  - Headache [Not Recovered/Not Resolved]
  - Incision site erythema [Not Recovered/Not Resolved]
  - Incision site pain [Not Recovered/Not Resolved]
  - Nasopharyngitis [Not Recovered/Not Resolved]
  - Pain [Not Recovered/Not Resolved]
  - Postoperative wound infection [Not Recovered/Not Resolved]
  - Productive cough [Not Recovered/Not Resolved]
  - Vertigo [Not Recovered/Not Resolved]
  - Weight increased [Not Recovered/Not Resolved]
  - Blood pressure diastolic increased [Not Recovered/Not Resolved]
  - Suspected COVID-19 [Recovered/Resolved]
  - Therapeutic response shortened [Not Recovered/Not Resolved]
  - Off label use [Not Recovered/Not Resolved]
